FAERS Safety Report 22955429 (Version 3)
Quarter: 2024Q4

REPORT INFORMATION
  Report Type: Spontaneous
  Country: NL (occurrence: NL)
  Receive Date: 20230918
  Receipt Date: 20241026
  Transmission Date: 20250115
  Serious: Yes (Congenital Anomaly)
  Sender: SANDOZ
  Company Number: None

PATIENT
  Sex: Female
  Weight: 4.6 kg

DRUGS (3)
  1. CETIRIZINE [Suspect]
     Active Substance: CETIRIZINE HYDROCHLORIDE
     Indication: Foetal exposure during pregnancy
     Dosage: (MATERNAL DOSE: 10 MG, QD (1D1STUK)
     Route: 064
     Dates: start: 20220101
  2. LETROZOLE [Suspect]
     Active Substance: LETROZOLE
     Indication: Foetal exposure during pregnancy
     Dosage: (MATERNAL DOSE: 2.5 MG, QD (1D1STUK GEDURENDE 5 DAGEN)
     Route: 064
     Dates: start: 20220808, end: 20220813
  3. LEXAPRO [Suspect]
     Active Substance: ESCITALOPRAM OXALATE
     Indication: Foetal exposure during pregnancy
     Dosage: (MATERNAL DOSE: 20 MG, QD (1DD1)
     Route: 064
     Dates: start: 20200101

REACTIONS (2)
  - Congenital genital malformation female [Not Recovered/Not Resolved]
  - Foetal exposure during pregnancy [Unknown]

NARRATIVE: CASE EVENT DATE: 20230615
